FAERS Safety Report 24462827 (Version 1)
Quarter: 2024Q4

REPORT INFORMATION
  Report Type: Spontaneous
  Country: CN (occurrence: CN)
  Receive Date: 20241018
  Receipt Date: 20241018
  Transmission Date: 20250115
  Serious: Yes (Other)
  Sender: SANOFI AVENTIS
  Company Number: CN-SA-2024SA295980

PATIENT
  Age: 80 Year
  Sex: Female
  Weight: 40 kg

DRUGS (11)
  1. ENOXAPARIN SODIUM [Suspect]
     Active Substance: ENOXAPARIN SODIUM
     Indication: Thrombosis prophylaxis
     Dosage: 0.4 ML,ONE TIME IN ONE DAY, START TIME: AT 11:36, STOP TIME:AT 10:23
     Route: 058
     Dates: start: 20240624, end: 20240627
  2. CYCLOPHOSPHAMIDE [Suspect]
     Active Substance: CYCLOPHOSPHAMIDE
     Indication: Anti-neutrophil cytoplasmic antibody positive vasculitis
     Dosage: 0.4 G, ONCE A DAY, DILUTED WITH 500 ML OF 0.9% SODIUM CHLORIDE, START TIME: 13:01,SECOND-LINE CHEMOT
     Route: 041
     Dates: start: 20240625, end: 20240625
  3. MESNA [Suspect]
     Active Substance: MESNA
     Indication: Prophylaxis
     Dosage: 0.4 G, ONCE A DAY, DILUTED WITH 100 ML OF 0.9% SODIUM CHLORIDE, (8 HOURS AFTER CYCLOPHOSPHAMIDE INFU
     Route: 041
     Dates: start: 20240625, end: 20240625
  4. MESNA [Suspect]
     Active Substance: MESNA
     Dosage: 0.4 G, ONCE A DAY, DILUTED WITH 100 ML OF 0.9% SODIUM CHLORIDE, START TIME: 13:01, (DIFFERENT CHANNE
     Route: 041
     Dates: start: 20240625, end: 20240625
  5. MESNA [Suspect]
     Active Substance: MESNA
     Dosage: 0.4 G, ONCE A DAY, DILUTED WITH 100 ML OF 0.9% SODIUM CHLORIDE, (4 HOURS AFTER CYCLOPHOSPHAMIDE INFU
     Route: 041
     Dates: start: 20240625, end: 20240625
  6. HEPARIN SODIUM [Suspect]
     Active Substance: HEPARIN SODIUM
     Indication: Venous thrombosis limb
     Dosage: 0.4 ML, BID, START TIME: AT 10:26,SECOND-LINE CHEMOTHERAPY
     Route: 058
     Dates: start: 20240627, end: 20240702
  7. HEPARIN SODIUM [Suspect]
     Active Substance: HEPARIN SODIUM
     Indication: Anticoagulant therapy
  8. SODIUM CHLORIDE [Suspect]
     Active Substance: SODIUM CHLORIDE
     Indication: Medication dilution
     Dosage: 500 ML, QD (USED TO DILUTE 0.4 G OF CYCLOPHOSPHAMIDE, START TIME: 13:01,SECOND-LINE CHEMOTHERAPY)
     Route: 041
     Dates: start: 20240625, end: 20240625
  9. SODIUM CHLORIDE [Suspect]
     Active Substance: SODIUM CHLORIDE
     Dosage: 100 ML, QD (USED TO DILUTE 0.4 G OF MESNA, (4 HOURS AFTER CYCLOPHOSPHAMIDE INFUSION))
     Route: 041
     Dates: start: 20240625, end: 20240625
  10. SODIUM CHLORIDE [Suspect]
     Active Substance: SODIUM CHLORIDE
     Dosage: 100 ML, QD (USED TO DILUTE 0.4 G OF MESNA, (4 HOURS AFTER CYCLOPHOSPHAMIDE INFUSION))
     Route: 041
     Dates: start: 20240625, end: 20240625
  11. SODIUM CHLORIDE [Suspect]
     Active Substance: SODIUM CHLORIDE
     Dosage: 100 ML, QD (USED TO DILUTE 0.4 G OF MESNA, START TIME: 13:01, (DIFFERENT CHANNEL INFUSION AT THE SAM
     Route: 041
     Dates: start: 20240625, end: 20240625

REACTIONS (6)
  - Deep vein thrombosis [Recovered/Resolved]
  - Ecchymosis [Recovering/Resolving]
  - Alanine aminotransferase increased [Recovering/Resolving]
  - Haemorrhage subcutaneous [Recovering/Resolving]
  - Coagulation time prolonged [Recovering/Resolving]
  - Extravasation blood [Recovered/Resolved]

NARRATIVE: CASE EVENT DATE: 20240627
